FAERS Safety Report 8446329-1 (Version None)
Quarter: 2012Q2

REPORT INFORMATION
  Report Type: 
  Country: None (occurrence: None)
  Receive Date: 20120618
  Receipt Date: 20120613
  Transmission Date: 20120825
  Serious: Yes (Disabling, Other)
  Sender: FDA-Public Use
  Company Number: US-PFIZER INC-2012143719

PATIENT
  Sex: Female

DRUGS (2)
  1. LYRICA [Suspect]
     Indication: FIBROMYALGIA
     Dosage: 450 MG, 1X/DAY
     Route: 048
  2. KETOCONAZOLE [Concomitant]
     Indication: SKIN DISORDER
     Dosage: UNK
     Route: 048

REACTIONS (2)
  - PALLOR [None]
  - SYSTEMIC LUPUS ERYTHEMATOSUS [None]
